FAERS Safety Report 5239692-6 (Version None)
Quarter: 2007Q1

REPORT INFORMATION
  Report Type: 
  Country: None (occurrence: None)
  Receive Date: 20070216
  Receipt Date: 20070207
  Transmission Date: 20070707
  Serious: Yes (Hospitalization)
  Sender: FDA-Public Use
  Company Number: JP-SANOFI-SYNTHELABO-A01200701521

PATIENT
  Age: 79 Year
  Sex: Female
  Weight: 51.7 kg

DRUGS (5)
  1. NAUZELIN [Concomitant]
     Indication: ANOREXIA
     Dosage: 30 MG
     Route: 048
     Dates: start: 20061208, end: 20061213
  2. TRANSAMIN [Concomitant]
     Indication: UPPER RESPIRATORY TRACT INFLAMMATION
     Dosage: 750 MG
     Route: 048
     Dates: start: 20061117, end: 20061217
  3. MYSLEE [Suspect]
     Indication: INSOMNIA
     Route: 048
     Dates: start: 20061101, end: 20061219
  4. PELEX [Concomitant]
     Indication: UPPER RESPIRATORY TRACT INFLAMMATION
     Dosage: 3 G
     Route: 048
     Dates: start: 20061117, end: 20061213
  5. BUFFERIN [Concomitant]
     Indication: UPPER RESPIRATORY TRACT INFLAMMATION
     Route: 048
     Dates: start: 20061117

REACTIONS (7)
  - ANOREXIA [None]
  - OCULOMUCOCUTANEOUS SYNDROME [None]
  - PYREXIA [None]
  - RASH GENERALISED [None]
  - RHINORRHOEA [None]
  - STOMATITIS [None]
  - UPPER RESPIRATORY TRACT INFLAMMATION [None]
